FAERS Safety Report 8423916-8 (Version None)
Quarter: 2012Q2

REPORT INFORMATION
  Report Type: 
  Country: None (occurrence: None)
  Receive Date: 20120608
  Receipt Date: 20120308
  Transmission Date: 20120825
  Serious: No
  Sender: FDA-Public Use
  Company Number: US-ASTRAZENECA-2012SE16369

PATIENT
  Age: 85 Year
  Sex: Female

DRUGS (6)
  1. CRESTOR [Suspect]
     Route: 048
  2. SIMVASTATIN [Suspect]
  3. LOSARTAN POTASSIUM [Suspect]
  4. ATACAND [Suspect]
     Indication: HYPERTENSION
     Route: 048
  5. ATACAND [Suspect]
     Route: 048
  6. CRESTOR [Suspect]
     Indication: ISCHAEMIC HEART DISEASE PROPHYLAXIS
     Route: 048
     Dates: start: 20030101, end: 20120201

REACTIONS (9)
  - URINE ABNORMALITY [None]
  - FATIGUE [None]
  - DIABETES MELLITUS [None]
  - HEADACHE [None]
  - DIZZINESS [None]
  - MUSCLE SPASMS [None]
  - PHOTOPHOBIA [None]
  - VISUAL IMPAIRMENT [None]
  - EYELID PTOSIS [None]
